FAERS Safety Report 23220303 (Version 1)
Quarter: 2023Q4

REPORT INFORMATION
  Report Type: Spontaneous
  Country: US (occurrence: US)
  Receive Date: 20231123
  Receipt Date: 20231123
  Transmission Date: 20240110
  Serious: No
  Sender: FDA-Public Use
  Company Number: US-APOTEX-2023AP008970

PATIENT
  Sex: Female

DRUGS (1)
  1. KETOROLAC TROMETHAMINE [Suspect]
     Active Substance: KETOROLAC TROMETHAMINE
     Indication: Product used for unknown indication
     Dosage: 3 GTT DROPS, QD (3 DROPS IN 1 EYE DAILY)
     Route: 047
     Dates: start: 20230531

REACTIONS (2)
  - Product use issue [Unknown]
  - Product dose omission issue [Unknown]

NARRATIVE: CASE EVENT DATE: 20230601
